FAERS Safety Report 4468101-X (Version None)
Quarter: 2004Q4

REPORT INFORMATION
  Report Type: 
  Country: None (occurrence: None)
  Receive Date: 20041004
  Receipt Date: 20041004
  Transmission Date: 20050328
  Serious: No
  Sender: FDA-Public Use
  Company Number: None

PATIENT
  Age: 21 Year
  Sex: Male
  Weight: 95.2554 kg

DRUGS (1)
  1. VIOXX [Suspect]
     Indication: INFLAMMATION
     Dosage: 1 1 A DAY ORAL
     Route: 048

REACTIONS (2)
  - DIZZINESS [None]
  - HEADACHE [None]
